FAERS Safety Report 6385766-6 (Version None)
Quarter: 2009Q4

REPORT INFORMATION
  Report Type: 
  Country: None (occurrence: None)
  Receive Date: 20091002
  Receipt Date: 20081117
  Transmission Date: 20100525
  Serious: No
  Sender: FDA-Public Use
  Company Number: US-ASTRAZENECA-2008UW20790

PATIENT
  Age: 90 Year
  Sex: Female

DRUGS (2)
  1. ARIMIDEX [Suspect]
     Indication: BREAST CANCER FEMALE
     Route: 048
     Dates: start: 20050401, end: 20081008
  2. ACTONEL [Concomitant]
     Route: 048

REACTIONS (5)
  - ASTHENIA [None]
  - GAIT DISTURBANCE [None]
  - GRIP STRENGTH DECREASED [None]
  - LIMB INJURY [None]
  - MUSCULAR WEAKNESS [None]
